FAERS Safety Report 4599263-1 (Version None)
Quarter: 2005Q1

REPORT INFORMATION
  Report Type: 
  Country: None (occurrence: None)
  Receive Date: 20050302
  Receipt Date: 20050302
  Transmission Date: 20050727
  Serious: Yes (Hospitalization)
  Sender: FDA-Public Use
  Company Number: None

PATIENT
  Age: 77 Year
  Sex: Female

DRUGS (11)
  1. CARVEDILOL [Suspect]
     Indication: CARDIAC FAILURE
     Dosage: 25MG  TWO TIMES A DAY ORAL
     Route: 048
     Dates: start: 20031007, end: 20031202
  2. CARVEDILOL [Suspect]
     Indication: CARDIOMYOPATHY
     Dosage: 25MG  TWO TIMES A DAY ORAL
     Route: 048
     Dates: start: 20031007, end: 20031202
  3. ISOSORBIDE DINITRATE [Concomitant]
  4. LEVOTHYROXINE [Concomitant]
  5. LISINOPRIL [Concomitant]
  6. DIGOXIN [Concomitant]
  7. DESMOPRESSIN [Concomitant]
  8. ASPIRIN [Concomitant]
  9. ROFECOXIB [Concomitant]
  10. CONJUGATED ESTROGEN [Concomitant]
  11. SULFAMETHOXAZOLE AND TRIMETHOPRIM [Concomitant]

REACTIONS (9)
  - ACUTE PRERENAL FAILURE [None]
  - BRADYCARDIA [None]
  - DIZZINESS [None]
  - DRUG EFFECT INCREASED [None]
  - FATIGUE [None]
  - HEART RATE DECREASED [None]
  - HYPOVOLAEMIA [None]
  - NAUSEA [None]
  - URINARY TRACT INFECTION [None]
